FAERS Safety Report 9437865 (Version 1)
Quarter: 2013Q3

REPORT INFORMATION
  Report Type: Spontaneous
  Country: US (occurrence: US)
  Receive Date: 20130802
  Receipt Date: 20130802
  Transmission Date: 20140515
  Serious: Yes (Disabling)
  Sender: FDA-Public Use
  Company Number: US-009507513-1307USA014464

PATIENT
  Sex: Male
  Weight: 81.63 kg

DRUGS (2)
  1. ZOCOR [Suspect]
     Dosage: UNK
     Route: 048
     Dates: start: 2006, end: 2006
  2. ASPIRIN [Concomitant]
     Dosage: UNK

REACTIONS (4)
  - Muscular weakness [Recovered/Resolved]
  - Myalgia [Recovered/Resolved]
  - Muscular weakness [Unknown]
  - Myalgia [Unknown]
